FAERS Safety Report 11625598 (Version 1)
Quarter: 2015Q4

REPORT INFORMATION
  Report Type: Spontaneous
  Country: BR (occurrence: BR)
  Receive Date: 20151013
  Receipt Date: 20151013
  Transmission Date: 20160304
  Serious: Yes (Death)
  Sender: FDA-Public Use
  Company Number: BR-PFIZER INC-2015337635

PATIENT
  Age: 23 Year
  Sex: Male

DRUGS (7)
  1. AMPHOTERICIN B. [Suspect]
     Active Substance: AMPHOTERICIN B
     Dosage: UNK
     Route: 042
  2. FOLINIC ACID [Suspect]
     Active Substance: LEUCOVORIN
     Dosage: UNK
     Route: 042
  3. PYRIMETHAMINE [Suspect]
     Active Substance: PYRIMETHAMINE
     Dosage: UNK
     Route: 042
  4. PHENYTOIN. [Suspect]
     Active Substance: PHENYTOIN
     Dosage: UNK
     Route: 042
  5. FLUCONAZOLE. [Suspect]
     Active Substance: FLUCONAZOLE
     Dosage: UNK
     Route: 042
  6. INSULIN [Suspect]
     Active Substance: INSULIN NOS
     Dosage: UNK
     Route: 042
  7. SULFADIAZINE. [Suspect]
     Active Substance: SULFADIAZINE
     Dosage: UNK
     Route: 042

REACTIONS (1)
  - Drug ineffective [Fatal]
